FAERS Safety Report 15802172 (Version 4)
Quarter: 2019Q1

REPORT INFORMATION
  Report Type: Report from Study
  Country: US (occurrence: US)
  Receive Date: 20190109
  Receipt Date: 20190321
  Transmission Date: 20190417
  Serious: Yes (Other)
  Sender: FDA-Public Use
  Company Number: PHEH2019US000736

PATIENT
  Sex: Female

DRUGS (4)
  1. COSENTYX [Suspect]
     Active Substance: SECUKINUMAB
     Indication: PSORIASIS
     Dosage: 300 MG, QW
     Route: 058
  2. COSENTYX [Suspect]
     Active Substance: SECUKINUMAB
     Dosage: 150 MG, QW
     Route: 065
  3. COSENTYX [Suspect]
     Active Substance: SECUKINUMAB
     Dosage: 300 MG, QW
     Route: 058
  4. COSENTYX [Suspect]
     Active Substance: SECUKINUMAB
     Dosage: 150 MG, QMO
     Route: 042

REACTIONS (17)
  - Cardiac failure [Unknown]
  - Blister [Unknown]
  - Cataract [Unknown]
  - Pain [Unknown]
  - Skin exfoliation [Not Recovered/Not Resolved]
  - Decreased appetite [Unknown]
  - Dry skin [Unknown]
  - Pulmonary hypertension [Unknown]
  - Respiration abnormal [Unknown]
  - Nausea [Recovering/Resolving]
  - Spinal cord compression [Unknown]
  - Nasopharyngitis [Unknown]
  - Malaise [Unknown]
  - Drug effect incomplete [Unknown]
  - Diabetes mellitus [Unknown]
  - Device leakage [Unknown]
  - Incorrect route of product administration [Unknown]
